FAERS Safety Report 5192069-4 (Version None)
Quarter: 2006Q4

REPORT INFORMATION
  Report Type: 
  Country: None (occurrence: None)
  Receive Date: 20061220
  Receipt Date: 20061208
  Transmission Date: 20070319
  Serious: Yes (Death, Hospitalization)
  Sender: FDA-Public Use
  Company Number: 2006SP004422

PATIENT
  Age: 70 Year
  Sex: Male

DRUGS (1)
  1. TEMODAL [Suspect]
     Indication: METASTASES TO CENTRAL NERVOUS SYSTEM
     Dates: end: 20030306

REACTIONS (17)
  - ABDOMINAL PAIN [None]
  - ACNE [None]
  - AMYOTROPHY [None]
  - CHILLS [None]
  - COORDINATION ABNORMAL [None]
  - COUGH [None]
  - DIARRHOEA [None]
  - DISEASE PROGRESSION [None]
  - DYSPNOEA EXERTIONAL [None]
  - GENERAL PHYSICAL HEALTH DETERIORATION [None]
  - HEADACHE [None]
  - MUCOSAL INFLAMMATION [None]
  - MUSCLE SPASMS [None]
  - NAUSEA [None]
  - PYREXIA [None]
  - SKIN REACTION [None]
  - TORTICOLLIS [None]
